FAERS Safety Report 8065019-0 (Version None)
Quarter: 2012Q1

REPORT INFORMATION
  Report Type: 
  Country: None (occurrence: None)
  Receive Date: 20120124
  Receipt Date: 20120117
  Transmission Date: 20120608
  Serious: Yes (Other)
  Sender: FDA-Public Use
  Company Number: US-AMGEN-USASP2012003332

PATIENT
  Age: 50 Year
  Sex: Male

DRUGS (1)
  1. ENBREL [Suspect]
     Indication: PSORIASIS
     Dosage: 50 MG, QWK
     Dates: start: 20090101

REACTIONS (5)
  - RASH MACULAR [None]
  - SKIN REACTION [None]
  - SWELLING FACE [None]
  - INJECTION SITE PAIN [None]
  - SUBCUTANEOUS ABSCESS [None]
